FAERS Safety Report 8532857-7 (Version None)
Quarter: 2012Q3

REPORT INFORMATION
  Report Type: 
  Country: None (occurrence: None)
  Receive Date: 20120712
  Receipt Date: 20120626
  Transmission Date: 20120928
  Serious: Yes (Death)
  Sender: FDA-Public Use
  Company Number: PROF20120005

PATIENT
  Age: 78 Year
  Sex: Female
  Weight: 80 kg

DRUGS (11)
  1. RAMIPRIL [Concomitant]
  2. TIOTROPIUM (TIOTROPIUM) (TIOTROPIUM) [Concomitant]
  3. DABIGATRAN (DABIGATRAN) [Suspect]
     Indication: PRODUCT USED FOR UNKNOWN INDICATION
     Dosage: 150 MG, TWICE DAILY
  4. FUROSEMIDE [Concomitant]
  5. IBANDRONATE (IBANDRONATE) [Concomitant]
  6. PROPAFENONE HYDROCHLORIDE [Suspect]
     Indication: PRODUCT USED FOR UNKNOWN INDICATION
  7. ALBUTEROL (SALBUTAMOL) (SALBUTAMOL) [Concomitant]
  8. ASPIRIN [Suspect]
     Indication: PRODUCT USED FOR UNKNOWN INDICATION
  9. FISH OIL (FISH OIL) [Concomitant]
  10. DOXEPIN (DOXEPIN) (DOXEPIN) [Concomitant]
  11. VITAMIN D (ERGOCALCIFEROL) (ERGOCALCIFEROL) [Concomitant]

REACTIONS (18)
  - INTERNATIONAL NORMALISED RATIO INCREASED [None]
  - COAGULOPATHY [None]
  - HAEMATOCRIT DECREASED [None]
  - SHOCK HAEMORRHAGIC [None]
  - CONTINUOUS HAEMODIAFILTRATION [None]
  - DRUG INTERACTION [None]
  - ALANINE AMINOTRANSFERASE INCREASED [None]
  - GASTROINTESTINAL HAEMORRHAGE [None]
  - ACTIVATED PARTIAL THROMBOPLASTIN TIME PROLONGED [None]
  - SEPTIC SHOCK [None]
  - HYPOTENSION [None]
  - PLEURAL HAEMORRHAGE [None]
  - PO2 DECREASED [None]
  - ASPARTATE AMINOTRANSFERASE INCREASED [None]
  - CREATININE URINE INCREASED [None]
  - HAEMOGLOBIN DECREASED [None]
  - BLOOD BICARBONATE DECREASED [None]
  - RETROPERITONEAL HAEMORRHAGE [None]
